FAERS Safety Report 12525004 (Version 1)
Quarter: 2016Q3

REPORT INFORMATION
  Report Type: Report from Study
  Country: CA (occurrence: CA)
  Receive Date: 20160704
  Receipt Date: 20160704
  Transmission Date: 20161109
  Serious: Yes (Other)
  Sender: FDA-Public Use
  Company Number: CA-UCBSA-2016024701

PATIENT
  Sex: Female

DRUGS (4)
  1. SERC [Concomitant]
     Active Substance: BETAHISTINE HYDROCHLORIDE
     Indication: VESTIBULAR NEURONITIS
     Dosage: UNK
     Dates: start: 201003
  2. GASTROLYTE [Concomitant]
     Active Substance: DEXTROSE\ELECTROLYTES NOS
     Indication: VOMITING
     Dosage: UNK
     Dates: start: 201003
  3. CERTOLIZUMAB PEGOL RA [Suspect]
     Active Substance: CERTOLIZUMAB PEGOL
     Indication: RHEUMATOID ARTHRITIS
     Dosage: 400 MG, EV 4 WEEKS
     Route: 058
     Dates: start: 20100104, end: 20100215
  4. GASTROLYTE [Concomitant]
     Active Substance: DEXTROSE\ELECTROLYTES NOS
     Indication: DIARRHOEA

REACTIONS (5)
  - Vestibular neuronitis [Unknown]
  - Rheumatoid arthritis [Unknown]
  - Vomiting [Unknown]
  - Influenza [Unknown]
  - Diarrhoea [Unknown]

NARRATIVE: CASE EVENT DATE: 2010
